FAERS Safety Report 5369190-0 (Version None)
Quarter: 2007Q2

REPORT INFORMATION
  Report Type: 
  Country: None (occurrence: None)
  Receive Date: 20070625
  Receipt Date: 20070613
  Transmission Date: 20071010
  Serious: Yes (Other)
  Sender: FDA-Public Use
  Company Number: US-ROCHE-502317

PATIENT
  Age: 25 Year
  Sex: Male

DRUGS (2)
  1. ACCUTANE [Suspect]
     Indication: DRUG USE FOR UNKNOWN INDICATION
     Route: 065
     Dates: start: 20000101
  2. ISOTRETINOIN (NON-ROCHE) [Suspect]
     Route: 065
     Dates: start: 20070301

REACTIONS (2)
  - JOINT INJURY [None]
  - TENDON DISORDER [None]
